FAERS Safety Report 6912117-8 (Version None)
Quarter: 2010Q3

REPORT INFORMATION
  Report Type: 
  Country: None (occurrence: None)
  Receive Date: 20100806
  Receipt Date: 20071206
  Transmission Date: 20110219
  Serious: No
  Sender: FDA-Public Use
  Company Number: US-PFIZER INC-2007102480

PATIENT
  Sex: Female
  Weight: 68.2 kg

DRUGS (1)
  1. DILANTIN [Suspect]
     Indication: CONVULSION
     Dates: start: 19970101

REACTIONS (3)
  - DRUG INTOLERANCE [None]
  - FEELING ABNORMAL [None]
  - UNEVALUABLE EVENT [None]
